FAERS Safety Report 8225166 (Version 2)
Quarter: 2014Q2

REPORT INFORMATION
  Report Type: Spontaneous
  Country: US (occurrence: US)
  Receive Date: 20111103
  Receipt Date: 20140502
  Transmission Date: 20141212
  Serious: No
  Sender: FDA-Public Use
  Company Number: US-BAYER-2011-105934

PATIENT
  Sex: 0

DRUGS (1)
  1. EXTAVIA [Suspect]
     Route: 058

REACTIONS (1)
  - Drug ineffective [None]
